FAERS Safety Report 15721427 (Version 1)
Quarter: 2018Q4

REPORT INFORMATION
  Report Type: Spontaneous
  Country: US (occurrence: US)
  Receive Date: 20181214
  Receipt Date: 20181214
  Transmission Date: 20190205
  Serious: No
  Sender: FDA-Public Use
  Company Number: US-BRISTOL-MYERS SQUIBB COMPANY-BMS-2018-117628

PATIENT
  Sex: Male
  Weight: 78.1 kg

DRUGS (1)
  1. OPDIVO [Suspect]
     Active Substance: NIVOLUMAB
     Indication: MALIGNANT MELANOMA STAGE III
     Dosage: UNK, Q2WK
     Route: 042
     Dates: start: 201801, end: 20181126

REACTIONS (5)
  - Fatigue [Unknown]
  - Eye inflammation [Unknown]
  - Inflammation [Unknown]
  - Rash [Unknown]
  - Vision blurred [Unknown]
